FAERS Safety Report 14155961 (Version 1)
Quarter: 2017Q4

REPORT INFORMATION
  Report Type: Spontaneous
  Country: CA (occurrence: CA)
  Receive Date: 20171103
  Receipt Date: 20171103
  Transmission Date: 20180321
  Serious: Yes (Other)
  Sender: FDA-Public Use
  Company Number: CA-PFIZER INC-2017474904

PATIENT
  Age: 76 Year
  Sex: Female

DRUGS (35)
  1. ENBREL [Suspect]
     Active Substance: ETANERCEPT
     Indication: RHEUMATOID ARTHRITIS
     Dosage: 25 MG, UNK
     Route: 065
  2. KINERET [Concomitant]
     Active Substance: ANAKINRA
     Dosage: 100 MG, UNK
  3. ARAVA [Suspect]
     Active Substance: LEFLUNOMIDE
     Dosage: 20 MG, QD
     Route: 065
  4. DEXAMETHASONE. [Concomitant]
     Active Substance: DEXAMETHASONE
     Dosage: UNK
  5. DILAUDID [Concomitant]
     Active Substance: HYDROMORPHONE HYDROCHLORIDE
     Dosage: UNK
  6. DIPHENHYDRAMINE. [Concomitant]
     Active Substance: DIPHENHYDRAMINE
     Dosage: UNK
  7. HYDROMORPHONE [Concomitant]
     Active Substance: HYDROMORPHONE
     Dosage: UNK
  8. KADIAN [Concomitant]
     Active Substance: MORPHINE SULFATE
     Dosage: UNK
  9. OMNARIS [Concomitant]
     Active Substance: CICLESONIDE
     Dosage: UNK
  10. ACTEMRA [Suspect]
     Active Substance: TOCILIZUMAB
     Dosage: UNK
     Route: 065
  11. KENALOG [Concomitant]
     Active Substance: TRIAMCINOLONE ACETONIDE
     Dosage: 40 MG, UNK
  12. LOPERAMIDE [Concomitant]
     Active Substance: LOPERAMIDE
     Dosage: UNK
  13. URISPAS [Concomitant]
     Active Substance: FLAVOXATE HYDROCHLORIDE
     Dosage: 200 MG, UNK
  14. CODEINE [Concomitant]
     Active Substance: CODEINE
     Dosage: UNK
  15. DESOXIMETASONE. [Concomitant]
     Active Substance: DESOXIMETASONE
     Dosage: UNK
  16. ENABLEX [Concomitant]
     Active Substance: DARIFENACIN HYDROBROMIDE
     Dosage: UNK
  17. METHOTREXATE SODIUM. [Suspect]
     Active Substance: METHOTREXATE SODIUM
     Dosage: 25 MG, QD
     Route: 065
  18. REMICADE [Suspect]
     Active Substance: INFLIXIMAB
     Dosage: 300 MG, UNK
     Route: 065
  19. ACETAMINOPHEN. [Concomitant]
     Active Substance: ACETAMINOPHEN
     Dosage: UNK
  20. NORFLEX [Concomitant]
     Active Substance: ORPHENADRINE CITRATE
     Dosage: UNK
  21. OXYNEO [Concomitant]
     Active Substance: OXYCODONE
     Dosage: UNK
  22. PANTOPRAZOLE SODIUM. [Concomitant]
     Active Substance: PANTOPRAZOLE SODIUM
     Dosage: UNK
  23. RESTASIS [Concomitant]
     Active Substance: CYCLOSPORINE
     Dosage: UNK
  24. RITUXAN [Concomitant]
     Active Substance: RITUXIMAB
     Dosage: UNK
  25. XELJANZ [Suspect]
     Active Substance: TOFACITINIB CITRATE
     Dosage: UNK
     Route: 065
  26. HUMIRA [Suspect]
     Active Substance: ADALIMUMAB
     Dosage: 40 MG, UNK
     Route: 065
  27. ORENCIA [Suspect]
     Active Substance: ABATACEPT
     Dosage: UNK
     Route: 065
  28. SODIUM AUROTHIOMALATE [Suspect]
     Active Substance: GOLD SODIUM THIOMALATE
     Dosage: UNK
     Route: 065
  29. TRIMETHOPRIM. [Concomitant]
     Active Substance: TRIMETHOPRIM
     Dosage: UNK
  30. VAGIFEM [Concomitant]
     Active Substance: ESTRADIOL
     Dosage: UNK
  31. HYDROXYCHLOROQUINE [Suspect]
     Active Substance: HYDROXYCHLOROQUINE
     Dosage: UNK
     Route: 065
  32. HYDROXYCHLOROQUINE [Suspect]
     Active Substance: HYDROXYCHLOROQUINE
     Dosage: 200 MG, BID
     Route: 065
  33. ATIVAN [Concomitant]
     Active Substance: LORAZEPAM
     Dosage: UNK
  34. LASIX [Concomitant]
     Active Substance: FUROSEMIDE
     Dosage: UNK
  35. SYNTHROID [Concomitant]
     Active Substance: LEVOTHYROXINE SODIUM
     Dosage: UNK

REACTIONS (16)
  - Arthritis [Unknown]
  - Fibromyalgia [Unknown]
  - Arthralgia [Unknown]
  - Herpes zoster [Unknown]
  - Blood cholesterol increased [Unknown]
  - Peripheral swelling [Unknown]
  - Anaemia [Unknown]
  - Liver function test abnormal [Unknown]
  - Pneumonia viral [Unknown]
  - Synovitis [Unknown]
  - Soft tissue disorder [Unknown]
  - Infection [Unknown]
  - Drug effect incomplete [Unknown]
  - Joint swelling [Unknown]
  - Leukopenia [Unknown]
  - Drug ineffective [Unknown]
